FAERS Safety Report 6476956-2 (Version None)
Quarter: 2009Q4

REPORT INFORMATION
  Report Type: 
  Country: None (occurrence: None)
  Receive Date: 20091202
  Receipt Date: 20091118
  Transmission Date: 20100525
  Serious: Yes (Hospitalization)
  Sender: FDA-Public Use
  Company Number: 8054539

PATIENT
  Age: 45 Year
  Sex: Female
  Weight: 66.7 kg

DRUGS (3)
  1. KEPPRA [Suspect]
     Indication: PARTIAL SEIZURES
     Dosage: 3500 MG /D PO
     Route: 048
     Dates: start: 20050101, end: 20081030
  2. KEPPRA [Suspect]
     Indication: PARTIAL SEIZURES
     Dosage: 3000 MG /D PO
     Route: 048
     Dates: start: 20081031
  3. TOPAMAX [Concomitant]

REACTIONS (3)
  - DEPRESSION [None]
  - DISTURBANCE IN ATTENTION [None]
  - PSYCHOTIC DISORDER [None]
